FAERS Safety Report 11333048 (Version 1)
Quarter: 2015Q3

REPORT INFORMATION
  Report Type: Spontaneous
  Country: US (occurrence: US)
  Receive Date: 20150803
  Receipt Date: 20150803
  Transmission Date: 20151125
  Serious: Yes (Other)
  Sender: FDA-Public Use
  Company Number: US-ELI_LILLY_AND_COMPANY-US200603002965

PATIENT
  Sex: Male
  Weight: 124.72 kg

DRUGS (1)
  1. ZYPREXA [Suspect]
     Active Substance: OLANZAPINE
     Indication: ANXIETY
     Dates: start: 20010909

REACTIONS (3)
  - Type 1 diabetes mellitus [Unknown]
  - Type 2 diabetes mellitus [Unknown]
  - Weight increased [Unknown]
